FAERS Safety Report 25025606 (Version 2)
Quarter: 2025Q1

REPORT INFORMATION
  Report Type: Spontaneous
  Country: US (occurrence: US)
  Receive Date: 20250228
  Receipt Date: 20250306
  Transmission Date: 20250408
  Serious: Yes (Death, Life-Threatening, Other)
  Sender: SANOFI AVENTIS
  Company Number: US-MLMSERVICE-20250221-PI413434-00218-3

PATIENT
  Age: 61 Year
  Sex: Male

DRUGS (9)
  1. METHOTREXATE [Suspect]
     Active Substance: METHOTREXATE
     Indication: Psoriatic arthropathy
  2. LEFLUNOMIDE [Suspect]
     Active Substance: LEFLUNOMIDE
     Indication: Psoriatic arthropathy
  3. SULFASALAZINE [Suspect]
     Active Substance: SULFASALAZINE
     Indication: Psoriatic arthropathy
  4. METHYLPREDNISOLONE [Suspect]
     Active Substance: METHYLPREDNISOLONE
     Indication: Psoriatic arthropathy
  5. MYCOPHENOLATE MOFETIL [Suspect]
     Active Substance: MYCOPHENOLATE MOFETIL
     Indication: Psoriatic arthropathy
  6. SECUKINUMAB [Suspect]
     Active Substance: SECUKINUMAB
     Indication: Psoriatic arthropathy
  7. ADALIMUMAB [Suspect]
     Active Substance: ADALIMUMAB
     Indication: Psoriatic arthropathy
  8. CORTICOSTEROID NOS [Suspect]
     Active Substance: CORTICOSTEROID NOS
     Indication: Epstein-Barr virus associated lymphoma
     Route: 061
  9. CORTICOSTEROID NOS [Suspect]
     Active Substance: CORTICOSTEROID NOS
     Indication: Psoriatic arthropathy
     Dates: start: 2021

REACTIONS (19)
  - Epstein-Barr virus associated lymphoma [Fatal]
  - Epstein-Barr virus infection [Fatal]
  - Cutaneous B-cell lymphoma [Fatal]
  - Marginal zone lymphoma [Fatal]
  - Skin cancer [Fatal]
  - Anaemia macrocytic [Fatal]
  - Metastases to lymph nodes [Fatal]
  - Skin mass [Fatal]
  - Diffuse large B-cell lymphoma [Fatal]
  - Plasmablastic lymphoma [Fatal]
  - Lymphoma transformation [Fatal]
  - Clonal haematopoiesis [Fatal]
  - Gastric ulcer haemorrhage [Fatal]
  - Upper gastrointestinal haemorrhage [Fatal]
  - Lymphadenopathy [Fatal]
  - Lymphocytic infiltration [Fatal]
  - Tumour pain [Fatal]
  - Metastases to gastrointestinal tract [Fatal]
  - Human herpesvirus 8 infection [Unknown]

NARRATIVE: CASE EVENT DATE: 20210101
